FAERS Safety Report 6120143-4 (Version None)
Quarter: 2009Q1

REPORT INFORMATION
  Report Type: 
  Country: None (occurrence: None)
  Receive Date: 20090312
  Receipt Date: 20090226
  Transmission Date: 20090719
  Serious: Yes (Hospitalization)
  Sender: FDA-Public Use
  Company Number: CIO09005108

PATIENT
  Age: 28 Month
  Sex: Female

DRUGS (1)
  1. VAPORUB, FORM/VERSION UNKNOWN(CAMPHOR 129-150 MG, CEDAR LEAF OIL UNKNO [Suspect]
     Dosage: 1 ONLY FOR 1 DAY, TOPICAL
     Route: 061

REACTIONS (5)
  - ACCIDENTAL EXPOSURE [None]
  - COUGH [None]
  - INSOMNIA [None]
  - OXYGEN SATURATION DECREASED [None]
  - RESTLESSNESS [None]
